FAERS Safety Report 8154873-X (Version None)
Quarter: 2012Q1

REPORT INFORMATION
  Report Type: 
  Country: None (occurrence: None)
  Receive Date: 20120221
  Receipt Date: 20120215
  Transmission Date: 20120608
  Serious: Yes (Death, Hospitalization)
  Sender: FDA-Public Use
  Company Number: PHHO2012FR002755

PATIENT
  Sex: Male
  Weight: 43 kg

DRUGS (1)
  1. IMATINIB MESYLATE [Suspect]
     Indication: ACUTE LYMPHOCYTIC LEUKAEMIA
     Dosage: UNK
     Dates: start: 20070913

REACTIONS (3)
  - BRONCHOPULMONARY ASPERGILLOSIS [None]
  - GRAFT VERSUS HOST DISEASE [None]
  - DIABETES MELLITUS [None]
